FAERS Safety Report 21818948 (Version 3)
Quarter: 2023Q1

REPORT INFORMATION
  Report Type: Spontaneous
  Country: CN (occurrence: CN)
  Receive Date: 20230104
  Receipt Date: 20230203
  Transmission Date: 20230417
  Serious: Yes (Other)
  Sender: FDA-Public Use
  Company Number: CN-MLMSERVICE-20221226-4003126-1

PATIENT
  Age: 37 Year
  Sex: Female
  Weight: 64.5 kg

DRUGS (4)
  1. EPIRUBICIN HYDROCHLORIDE [Suspect]
     Active Substance: EPIRUBICIN HYDROCHLORIDE
     Indication: Perivascular epithelioid cell tumour
     Dosage: 60 MG/M2 (100-110 MG ON DAY 1)
     Route: 042
     Dates: start: 201511
  2. EPIRUBICIN HYDROCHLORIDE [Suspect]
     Active Substance: EPIRUBICIN HYDROCHLORIDE
     Indication: Metastases to lymph nodes
  3. IFOSFAMIDE [Suspect]
     Active Substance: IFOSFAMIDE
     Indication: Perivascular epithelioid cell tumour
     Dosage: 4.5 G/M^2/D FROM DAY 1 TO DAY 3 (7-7.5 G IN TOTAL, 2.5-3.0 G/D)
     Dates: start: 201511
  4. IFOSFAMIDE [Suspect]
     Active Substance: IFOSFAMIDE
     Indication: Metastases to lymph nodes

REACTIONS (2)
  - Myelosuppression [Unknown]
  - Gastrointestinal disorder [Unknown]
